FAERS Safety Report 8681173 (Version 4)
Quarter: 2015Q3

REPORT INFORMATION
  Report Type: Report from Study
  Country: US (occurrence: US)
  Receive Date: 20120725
  Receipt Date: 20150917
  Transmission Date: 20151125
  Serious: Yes (Hospitalization)
  Sender: FDA-Public Use
  Company Number: US-BIOGENIDEC-2012BI026316

PATIENT
  Age: 60 Year
  Sex: Female

DRUGS (1)
  1. AVONEX [Suspect]
     Active Substance: INTERFERON BETA-1A
     Indication: MULTIPLE SCLEROSIS
     Route: 030
     Dates: start: 19980101, end: 2015

REACTIONS (6)
  - Hysterectomy [Recovered/Resolved]
  - Bladder disorder [Not Recovered/Not Resolved]
  - Pain in extremity [Not Recovered/Not Resolved]
  - Anaemia [Recovered/Resolved with Sequelae]
  - Pelvic prolapse [Recovered/Resolved]
  - Vertebral osteophyte [Recovered/Resolved]

NARRATIVE: CASE EVENT DATE: 201205
